FAERS Safety Report 4302727-9 (Version None)
Quarter: 2004Q1

REPORT INFORMATION
  Report Type: 
  Country: None (occurrence: None)
  Receive Date: 20040224
  Receipt Date: 20040113
  Transmission Date: 20041129
  Serious: Yes (Hospitalization)
  Sender: FDA-Public Use
  Company Number: PHBS2004JP00798

PATIENT
  Age: 46 Year
  Sex: Male
  Weight: 85 kg

DRUGS (4)
  1. VOLTAREN [Suspect]
     Indication: PAIN
     Dosage: 100 TO 150 MG/DAY
     Route: 054
     Dates: start: 20010101, end: 20031009
  2. LOXONIN [Concomitant]
     Dosage: 3 DF/DAY
     Route: 048
     Dates: end: 20031009
  3. MUCOSTA [Concomitant]
     Dosage: 3 DF/DAY
     Route: 048
     Dates: end: 20031009
  4. SOLANAX [Concomitant]
     Dosage: 2 DF/DAY
     Route: 048
     Dates: end: 20031009

REACTIONS (7)
  - COLD SWEAT [None]
  - HYPERHIDROSIS [None]
  - NAUSEA [None]
  - RENAL FAILURE ACUTE [None]
  - RHABDOMYOLYSIS [None]
  - VIRAL INFECTION [None]
  - VOMITING [None]
